FAERS Safety Report 4312108-X (Version None)
Quarter: 2004Q1

REPORT INFORMATION
  Report Type: 
  Country: None (occurrence: None)
  Receive Date: 20040304
  Receipt Date: 20040304
  Transmission Date: 20041129
  Serious: Yes (Other)
  Sender: FDA-Public Use
  Company Number: None

PATIENT
  Sex: Male

DRUGS (2)
  1. GATIFLOXACIN [Suspect]
     Indication: CHRONIC OBSTRUCTIVE AIRWAYS DISEASE
  2. GATIFLOXACIN [Suspect]
     Indication: UPPER RESPIRATORY TRACT INFECTION

REACTIONS (1)
  - BLOOD GLUCOSE INCREASED [None]
